FAERS Safety Report 9960855 (Version 1)
Quarter: 2014Q1

REPORT INFORMATION
  Report Type: Report from Study
  Country: US (occurrence: US)
  Receive Date: 20140305
  Receipt Date: 20140305
  Transmission Date: 20141002
  Serious: No
  Sender: FDA-Public Use
  Company Number: US-ABBVIE-13P-163-1108616-00

PATIENT
  Age: 31 Year
  Sex: Female

DRUGS (6)
  1. HUMIRA [Suspect]
     Indication: PSORIASIS
     Dates: start: 20130606, end: 20130606
  2. HUMIRA [Suspect]
     Dates: start: 20130613
  3. ADDERALL EXTENSIVE RELEASE [Concomitant]
     Indication: ATTENTION DEFICIT/HYPERACTIVITY DISORDER
  4. EXCEDRIN MIGRAINE [Concomitant]
     Indication: HEADACHE
     Dosage: ABOUT ONCE A WEEK FOR HEADACHE GETS FROM ADDERALL
  5. PRESCRIPTION TOOTHPASTE [Concomitant]
     Indication: DENTAL FLUORIDE THERAPY
  6. PRESCRIPTION LOTION [Concomitant]
     Indication: PSORIASIS

REACTIONS (5)
  - Injection site pain [Recovered/Resolved]
  - Injection site haemorrhage [Recovered/Resolved]
  - Injection site pain [Recovered/Resolved]
  - Injection site bruising [Recovered/Resolved]
  - Injection site haemorrhage [Recovered/Resolved]
